FAERS Safety Report 11181376 (Version 1)
Quarter: 2015Q2

REPORT INFORMATION
  Report Type: Spontaneous
  Country: US (occurrence: US)
  Receive Date: 20150611
  Receipt Date: 20150611
  Transmission Date: 20150821
  Serious: No
  Sender: FDA-Public Use
  Company Number: US-ENDO PHARMACEUTICALS INC.-LORA20150002

PATIENT
  Sex: Female

DRUGS (3)
  1. CARISOPRODOL TABLETS 350MG [Concomitant]
     Active Substance: CARISOPRODOL
     Indication: MUSCLE SPASMS
  2. LORAZEPAM TABLETS [Suspect]
     Active Substance: LORAZEPAM
     Indication: PRODUCT USED FOR UNKNOWN INDICATION
     Route: 060
  3. ZOLPIDEM [Concomitant]
     Active Substance: ZOLPIDEM\ZOLPIDEM TARTRATE
     Indication: PRODUCT USED FOR UNKNOWN INDICATION

REACTIONS (3)
  - Product physical issue [Unknown]
  - Incorrect route of drug administration [Unknown]
  - Drug ineffective [Unknown]
